FAERS Safety Report 8257639-5 (Version None)
Quarter: 2012Q2

REPORT INFORMATION
  Report Type: 
  Country: None (occurrence: None)
  Receive Date: 20120403
  Receipt Date: 20120326
  Transmission Date: 20120825
  Serious: Yes (Hospitalization, Other)
  Sender: FDA-Public Use
  Company Number: CH-MERCK-1203USA03664

PATIENT
  Age: 14 Year
  Sex: Female

DRUGS (5)
  1. TRAMADOL HCL [Suspect]
     Route: 065
     Dates: start: 20111110
  2. TRAMADOL HCL [Suspect]
     Dosage: ABOUT 3 DOSAGE FORMS
     Route: 065
     Dates: start: 20111110
  3. CO-DAFALGAN [Suspect]
     Route: 065
     Dates: start: 20111110
  4. IBUPROFEN [Suspect]
     Route: 065
  5. HYZAAR [Suspect]
     Route: 048
     Dates: start: 20111110

REACTIONS (7)
  - TACHYCARDIA [None]
  - MULTIPLE DRUG OVERDOSE INTENTIONAL [None]
  - SUICIDE ATTEMPT [None]
  - AGITATION [None]
  - OBSTRUCTIVE AIRWAYS DISORDER [None]
  - EPISTAXIS [None]
  - OXYGEN SATURATION DECREASED [None]
